FAERS Safety Report 7520476-0 (Version None)
Quarter: 2011Q2

REPORT INFORMATION
  Report Type: 
  Country: None (occurrence: None)
  Receive Date: 20110602
  Receipt Date: 20080303
  Transmission Date: 20111010
  Serious: Yes (Hospitalization)
  Sender: FDA-Public Use
  Company Number: CA-GENENTECH-254226

PATIENT
  Sex: Male
  Weight: 75 kg

DRUGS (1)
  1. OMALIZUMAB [Suspect]
     Indication: ASTHMA
     Dosage: 225 MG, Q2W
     Route: 058
     Dates: start: 20071127

REACTIONS (3)
  - LUNG DISORDER [None]
  - DYSPNOEA [None]
  - BRONCHIECTASIS [None]
